FAERS Safety Report 20794724 (Version 4)
Quarter: 2022Q3

REPORT INFORMATION
  Report Type: Spontaneous
  Country: US (occurrence: US)
  Receive Date: 20220506
  Receipt Date: 20220812
  Transmission Date: 20221027
  Serious: Yes (Other)
  Sender: FDA-Public Use
  Company Number: US-PROCTER_AND_GAMBLE-GS22028368

PATIENT
  Sex: Male
  Weight: 86.168 kg

DRUGS (2)
  1. CREST PRO-HEALTH GUM AND SENSITIVITY REFRESHING MINT [Suspect]
     Active Substance: STANNOUS FLUORIDE
     Indication: Dental disorder prophylaxis
     Dosage: TO COVER BRUSH, 2 TIMES DAILY
     Route: 002
     Dates: start: 202112, end: 20220313
  2. MORNIFLUMATE [Concomitant]
     Active Substance: MORNIFLUMATE

REACTIONS (5)
  - Tooth abscess [Not Recovered/Not Resolved]
  - Tooth disorder [Not Recovered/Not Resolved]
  - Tooth infection [Not Recovered/Not Resolved]
  - Hyperaesthesia teeth [Unknown]
  - Computerised tomogram abnormal [Unknown]

NARRATIVE: CASE EVENT DATE: 20220101
